FAERS Safety Report 5207718-1 (Version None)
Quarter: 2006Q4

REPORT INFORMATION
  Report Type: 
  Country: None (occurrence: None)
  Receive Date: 20061030
  Receipt Date: 20060823
  Transmission Date: 20070319
  Serious: No
  Sender: FDA-Public Use
  Company Number: 2006CT000708

PATIENT
  Age: 57 Year
  Sex: Female
  Weight: 151.955 kg

DRUGS (12)
  1. VENTAVIS [Suspect]
     Indication: PULMONARY HYPERTENSION
     Dosage: 5 UG; 5XD; INH
     Route: 055
     Dates: start: 20060818
  2. TRACLEER [Concomitant]
  3. OXYGEN [Concomitant]
  4. ATROVASTATIN [Concomitant]
  5. PEPCID [Concomitant]
  6. INSULIN [Concomitant]
  7. ENALAPRIL MALEATE [Concomitant]
  8. ZOLOFT [Concomitant]
  9. AMLODIPINE [Concomitant]
  10. FUROSEMIDE [Concomitant]
  11. K-DUR 10 [Concomitant]
  12. ALLOPURINOL SODIUM [Concomitant]

REACTIONS (1)
  - EPISTAXIS [None]
